FAERS Safety Report 19519722 (Version 1)
Quarter: 2021Q3

REPORT INFORMATION
  Report Type: Spontaneous
  Country: ES (occurrence: ES)
  Receive Date: 20210712
  Receipt Date: 20210712
  Transmission Date: 20211014
  Serious: Yes (Other)
  Sender: FDA-Public Use
  Company Number: ES-ACCORD-231078

PATIENT
  Age: 73 Year
  Sex: Female
  Weight: 78 kg

DRUGS (2)
  1. PRAXILENE [Suspect]
     Active Substance: NAFRONYL
     Indication: PRODUCT USED FOR UNKNOWN INDICATION
     Dosage: 100 MG, CAPSULES, 50 CAPSULES, 1 TABLET OF 100 MG IN THE MORNING,
     Dates: start: 20201029
  2. ATORVASTATIN ACCORD [Suspect]
     Active Substance: ATORVASTATIN
     Indication: PRODUCT USED FOR UNKNOWN INDICATION
     Dosage: 40 MG FILM?COATED TABLETS EFG, 28 TABLETS, 40 MG ONCE A DAY
     Route: 048
     Dates: start: 20201029

REACTIONS (2)
  - Dizziness [Not Recovered/Not Resolved]
  - Inappropriate affect [Not Recovered/Not Resolved]

NARRATIVE: CASE EVENT DATE: 20210408
